APPROVED DRUG PRODUCT: NAPROXEN SODIUM
Active Ingredient: NAPROXEN SODIUM
Strength: EQ 500MG BASE
Dosage Form/Route: TABLET;ORAL
Application: A074198 | Product #002
Applicant: TEVA PHARMACEUTICALS USA INC
Approved: Dec 21, 1993 | RLD: No | RS: No | Type: DISCN